FAERS Safety Report 5191544-6 (Version None)
Quarter: 2006Q4

REPORT INFORMATION
  Report Type: 
  Country: None (occurrence: None)
  Receive Date: 20061219
  Receipt Date: 20061118
  Transmission Date: 20070319
  Serious: Yes (Other)
  Sender: FDA-Public Use
  Company Number: 2006143776

PATIENT
  Age: 57 Year
  Sex: Male
  Weight: 72.5755 kg

DRUGS (2)
  1. DILANTIN KAPSEAL [Suspect]
     Indication: EPILEPSY
     Dosage: 400 MG (100 MG, 4 IN 1 D), ORAL; 50 MG (50 MG, 1 IN 1 D), ORAL
     Route: 048
  2. ZOCOR [Suspect]
     Indication: BLOOD CHOLESTEROL INCREASED
     Dates: start: 20061108

REACTIONS (4)
  - BLOOD CHOLESTEROL INCREASED [None]
  - CONVULSION [None]
  - DRUG LEVEL DECREASED [None]
  - SLEEP DISORDER [None]
